FAERS Safety Report 16050456 (Version 1)
Quarter: 2019Q1

REPORT INFORMATION
  Report Type: Report from Study
  Country: NL (occurrence: NL)
  Receive Date: 20190308
  Receipt Date: 20190308
  Transmission Date: 20190418
  Serious: Yes (Other)
  Sender: FDA-Public Use
  Company Number: NL-TOLMAR, INC.-2019NL002281

PATIENT

DRUGS (2)
  1. ELIGARD [Suspect]
     Active Substance: LEUPROLIDE ACETATE
     Dosage: 45 MG, ONCE IN 6 MONTHS
     Route: 058
     Dates: start: 20190227
  2. ELIGARD [Suspect]
     Active Substance: LEUPROLIDE ACETATE
     Indication: PROSTATE CANCER
     Dosage: 45 MG, ONCE IN 6 MONTHS
     Route: 058
     Dates: start: 20180827

REACTIONS (4)
  - Nocturia [Unknown]
  - Hot flush [Not Recovered/Not Resolved]
  - Dysuria [Unknown]
  - Prostatomegaly [Unknown]
